FAERS Safety Report 24201841 (Version 1)
Quarter: 2024Q3

REPORT INFORMATION
  Report Type: Spontaneous
  Country: NL (occurrence: NL)
  Receive Date: 20240812
  Receipt Date: 20240812
  Transmission Date: 20241017
  Serious: Yes (Life-Threatening)
  Sender: MERCK
  Company Number: None

PATIENT
  Age: 77 Year
  Sex: Female
  Weight: 71.7 kg

DRUGS (13)
  1. PEMBROLIZUMAB [Suspect]
     Active Substance: PEMBROLIZUMAB
     Indication: Non-small cell lung cancer stage IV
     Dosage: UNKNOWN, THE DOCTOR IS A PULMONOLOGIST IN ST JANSDAL
     Dates: start: 20240516, end: 20240627
  2. CISPLATIN [Suspect]
     Active Substance: CISPLATIN
     Indication: Non-small cell lung cancer stage IV
     Dosage: TREATMENT BY A PULMONOLOGIST IN ST JANSDAL
     Dates: start: 20240516, end: 20240627
  3. PEMETREXED [Suspect]
     Active Substance: PEMETREXED
     Indication: Non-small cell lung cancer stage IV
     Dosage: UNKNOWN, THE DOCTOR IS A PULMONOLOGIST IN ST JANSDAL
     Dates: start: 20240516, end: 20240627
  4. LISINOPRIL [Concomitant]
     Active Substance: LISINOPRIL
     Dosage: TABLET, 10 MG (MILLIGRAM)
  5. FOLIC ACID [Concomitant]
     Active Substance: FOLIC ACID
     Dosage: TABLET, 0.5 MG (MILLIGRAM)
  6. HYDROCHLOROTHIAZIDE [Concomitant]
     Active Substance: HYDROCHLOROTHIAZIDE
     Dosage: TABLET, 25 MG (MILLIGRAM)
  7. ATORVASTATIN [Concomitant]
     Active Substance: ATORVASTATIN
     Dosage: TABLET, 10 MG (MILLIGRAM)
  8. AMLODIPINE [Concomitant]
     Active Substance: AMLODIPINE BESYLATE
     Dosage: TABLET, 5 MG (MILLIGRAM)
  9. POLYETHYLENE GLYCOLS [Concomitant]
     Active Substance: POLYETHYLENE GLYCOLS
     Dosage: POWDER, IF NECESSARY 1DD1-2
  10. APIXABAN [Concomitant]
     Active Substance: APIXABAN
     Dosage: 5MG 2DD2
  11. SUCRALFATE [Concomitant]
     Active Substance: SUCRALFATE
     Dosage: SACHET (GRANULES), 1 G (GRAM), 4DD1
  12. METOCLOPRAMIDE [Concomitant]
     Active Substance: METOCLOPRAMIDE
     Dosage: 10MG 1 TABLET AS NEEDED
  13. PANTOPRAZOLE [Concomitant]
     Active Substance: PANTOPRAZOLE
     Dosage: 40MG 2DD2

REACTIONS (2)
  - Drug eruption [Recovering/Resolving]
  - Drug eruption [Recovering/Resolving]
